APPROVED DRUG PRODUCT: MOVIPREP
Active Ingredient: ASCORBIC ACID; POLYETHYLENE GLYCOL 3350; POTASSIUM CHLORIDE; SODIUM ASCORBATE; SODIUM CHLORIDE; SODIUM SULFATE
Strength: 4.7GM;100GM;1.015GM;5.9GM;2.691GM;7.5GM
Dosage Form/Route: FOR SOLUTION;ORAL
Application: N021881 | Product #001 | TE Code: AA
Applicant: SALIX PHARMACEUTICALS INC
Approved: Aug 2, 2006 | RLD: Yes | RS: Yes | Type: RX